FAERS Safety Report 14482708 (Version 2)
Quarter: 2018Q1

REPORT INFORMATION
  Report Type: Spontaneous
  Country: DE (occurrence: DE)
  Receive Date: 20180203
  Receipt Date: 20180215
  Transmission Date: 20180509
  Serious: Yes (Other)
  Sender: FDA-Public Use
  Company Number: DE-TEVA-2018-DE-850986

PATIENT
  Sex: Female

DRUGS (1)
  1. TRAMADOL-RATIOPHARM 100 MG RETARDTABLETTEN [Suspect]
     Active Substance: TRAMADOL
     Indication: PAIN
     Route: 048
     Dates: start: 201607, end: 201611

REACTIONS (2)
  - Tumour marker increased [Not Recovered/Not Resolved]
  - Breast cancer female [Not Recovered/Not Resolved]

NARRATIVE: CASE EVENT DATE: 201612
